FAERS Safety Report 10390667 (Version 1)
Quarter: 2014Q3

REPORT INFORMATION
  Report Type: Spontaneous
  Country: FR (occurrence: None)
  Receive Date: 20140814
  Receipt Date: 20140814
  Transmission Date: 20150326
  Serious: Yes (Hospitalization)
  Sender: FDA-Public Use
  Company Number: AUR-APL-2014-08670

PATIENT
  Age: 81 Year
  Sex: Female

DRUGS (13)
  1. PREVISCAN [Concomitant]
     Active Substance: FLUINDIONE
  2. LANSOY RASPBERRY (PARAFFIN, LIQUID) [Concomitant]
  3. SERESTA (OXAZEPAM) [Concomitant]
     Active Substance: OXAZEPAM
  4. FLECAINE (FLECAINIDE ACETATE) [Concomitant]
  5. DEBRIDAT [Concomitant]
     Active Substance: TRIMEBUTINE MALEATE
  6. VALIUM [Concomitant]
     Active Substance: DIAZEPAM
  7. SERTRALINE ARROW [Suspect]
     Active Substance: SERTRALINE HYDROCHLORIDE
     Indication: ANXIETY
     Dosage: UNK
     Route: 048
     Dates: start: 20140408
  8. ZOLPIDEM ARROW (ZOLPIDEM TARTRATE) [Concomitant]
  9. BISOPROLOL ARROW (BISOPROLOL FUMARATE) [Concomitant]
  10. ZYMAD (COLECALCIFEROL) [Concomitant]
  11. ZOLPIDEM ARROW (ZOLPIDEM TARTRATE) [Concomitant]
  12. SERTRALINE ARROW [Suspect]
     Active Substance: SERTRALINE HYDROCHLORIDE
     Indication: DEPRESSION
     Dosage: UNK
     Route: 048
     Dates: start: 20140408
  13. DACRYOSERUM [Concomitant]
     Active Substance: BORIC ACID\SODIUM BORATE

REACTIONS (5)
  - Decreased appetite [None]
  - Asthenia [None]
  - Tachycardia [None]
  - Anxiety [None]
  - Generalised tonic-clonic seizure [None]

NARRATIVE: CASE EVENT DATE: 20140408
